FAERS Safety Report 23724099 (Version 2)
Quarter: 2024Q4

REPORT INFORMATION
  Report Type: Spontaneous
  Country: JP (occurrence: JP)
  Receive Date: 20240409
  Receipt Date: 20241226
  Transmission Date: 20250115
  Serious: Yes (Life-Threatening, Hospitalization)
  Sender: ELI LILLY AND COMPANY
  Company Number: JP-ELI_LILLY_AND_COMPANY-JP202404003675

PATIENT
  Age: 21 Year
  Sex: Male

DRUGS (1)
  1. ATOMOXETINE HYDROCHLORIDE [Suspect]
     Active Substance: ATOMOXETINE HYDROCHLORIDE
     Indication: Attention deficit hyperactivity disorder
     Route: 048

REACTIONS (3)
  - Phaeochromocytoma crisis [Recovering/Resolving]
  - Cardiac failure acute [Recovering/Resolving]
  - Metabolic acidosis [Unknown]
